FAERS Safety Report 7558839-X (Version None)
Quarter: 2011Q2

REPORT INFORMATION
  Report Type: 
  Country: None (occurrence: None)
  Receive Date: 20110613
  Receipt Date: 20110527
  Transmission Date: 20111010
  Serious: Yes (Other)
  Sender: FDA-Public Use
  Company Number: DSA_46855_2011

PATIENT
  Age: 63 Year
  Sex: Female

DRUGS (3)
  1. DILTIAZEM HYDROCHLORIDE (DILTIAZEM HYDROCHLORIDE) (NOT SPECIFIED)90 MG [Suspect]
     Indication: HYPERTENSION
     Dosage: (90 MG BID UNKNOWN)
  2. SIMVASTATIN [Suspect]
     Indication: TYPE IIA HYPERLIPIDAEMIA
     Dosage: (40 MG QD, DF), (80 MG QD)
  3. ENALAPRIL MALEATE [Concomitant]

REACTIONS (4)
  - ALANINE AMINOTRANSFERASE INCREASED [None]
  - DRUG INTERACTION [None]
  - MYOPATHY [None]
  - BLOOD CREATINE PHOSPHOKINASE INCREASED [None]
